FAERS Safety Report 4525650-3 (Version None)
Quarter: 2004Q4

REPORT INFORMATION
  Report Type: 
  Country: None (occurrence: None)
  Receive Date: 20041116
  Receipt Date: 20040831
  Transmission Date: 20050328
  Serious: No
  Sender: FDA-Public Use
  Company Number: S04-USA-05902-01

PATIENT
  Age: 56 Year
  Sex: Male

DRUGS (15)
  1. NAMENDA [Suspect]
     Indication: DEMENTIA ALZHEIMER'S TYPE
     Dosage: 5 MG QD PO
     Route: 048
     Dates: start: 20040101, end: 20040101
  2. NAMENDA [Suspect]
     Indication: DEMENTIA ALZHEIMER'S TYPE
     Dosage: 10 MG QD PO
     Route: 048
     Dates: start: 20040101, end: 20040101
  3. NAMENDA [Suspect]
     Indication: DEMENTIA ALZHEIMER'S TYPE
     Dosage: 15 MG QD PO
     Route: 048
     Dates: start: 20040101, end: 20040101
  4. NAMENDA [Suspect]
     Indication: DEMENTIA ALZHEIMER'S TYPE
     Dosage: 20 MG QD PO
     Route: 048
     Dates: start: 20040101
  5. RISPERDAL [Suspect]
     Indication: SOMNOLENCE
     Dosage: 2 MG QHS PO
     Route: 048
     Dates: start: 20040701
  6. MECLIZINE [Concomitant]
  7. ZEBETA [Concomitant]
  8. XANAX [Concomitant]
  9. DEPAKOTE [Concomitant]
  10. ALLEGRA [Concomitant]
  11. PEPCID [Concomitant]
  12. HYDROCODONE [Concomitant]
  13. PAXIL [Concomitant]
  14. LASIX [Concomitant]
  15. POTASSIUM [Concomitant]

REACTIONS (1)
  - SOMNOLENCE [None]
